FAERS Safety Report 24584107 (Version 2)
Quarter: 2024Q4

REPORT INFORMATION
  Report Type: Spontaneous
  Country: DE (occurrence: DE)
  Receive Date: 20241106
  Receipt Date: 20241227
  Transmission Date: 20250115
  Serious: Yes (Other)
  Sender: ALEXION PHARMACEUTICALS
  Company Number: DE-ASTRAZENECA-202410EEA025495DE

PATIENT

DRUGS (4)
  1. ANIFROLUMAB [Suspect]
     Active Substance: ANIFROLUMAB
     Route: 065
  2. ANIFROLUMAB [Suspect]
     Active Substance: ANIFROLUMAB
     Route: 065
  3. ANIFROLUMAB [Suspect]
     Active Substance: ANIFROLUMAB
     Route: 065
  4. ANIFROLUMAB [Suspect]
     Active Substance: ANIFROLUMAB
     Route: 065

REACTIONS (1)
  - Breast cancer [Unknown]
